FAERS Safety Report 4644079-0 (Version None)
Quarter: 2005Q1

REPORT INFORMATION
  Report Type: 
  Country: None (occurrence: None)
  Receive Date: 20050331
  Receipt Date: 20041228
  Transmission Date: 20050727
  Serious: No
  Sender: FDA-Public Use
  Company Number: 04P-163-0284837-00

PATIENT
  Age: 48 Year
  Sex: Female

DRUGS (6)
  1. HUMIRA [Suspect]
     Indication: RHEUMATOID ARTHRITIS
     Dosage: 40 MG, 1 IN 2 WK, SUBCUTANEOUS
     Route: 058
     Dates: start: 20041215
  2. OXYCOCET [Concomitant]
  3. HYDROCODONE BITARTRATE [Concomitant]
  4. PREDNISONE [Concomitant]
  5. AZATHIOPRINE [Concomitant]
  6. ESTROGENS CONJUGATED [Concomitant]

REACTIONS (1)
  - INFLUENZA LIKE ILLNESS [None]
